FAERS Safety Report 7370682-3 (Version None)
Quarter: 2011Q1

REPORT INFORMATION
  Report Type: 
  Country: None (occurrence: None)
  Receive Date: 20110323
  Receipt Date: 20110314
  Transmission Date: 20110831
  Serious: Yes (Hospitalization)
  Sender: FDA-Public Use
  Company Number: US-MYLANLABS-2011S1005424

PATIENT
  Age: 72 Year
  Sex: Female

DRUGS (12)
  1. LISINOPRIL AND HYDROCHLOROTHIAZIDE [Suspect]
     Indication: BLOOD PRESSURE
     Route: 048
     Dates: start: 20050101, end: 20110201
  2. LISINOPRIL AND HYDROCHLOROTHIAZIDE [Suspect]
     Route: 048
     Dates: start: 20110301, end: 20110305
  3. LISINOPRIL AND HYDROCHLOROTHIAZIDE [Suspect]
     Route: 048
     Dates: start: 20110301, end: 20110305
  4. LISINOPRIL AND HYDROCHLOROTHIAZIDE [Suspect]
     Route: 048
     Dates: start: 20110301, end: 20110305
  5. LISINOPRIL AND HYDROCHLOROTHIAZIDE [Suspect]
     Route: 048
     Dates: start: 20110201
  6. LISINOPRIL AND HYDROCHLOROTHIAZIDE [Suspect]
     Indication: FLUID RETENTION
     Route: 048
     Dates: start: 20050101, end: 20110201
  7. LISINOPRIL AND HYDROCHLOROTHIAZIDE [Suspect]
     Route: 048
     Dates: start: 20110301, end: 20110305
  8. LISINOPRIL AND HYDROCHLOROTHIAZIDE [Suspect]
     Route: 048
     Dates: start: 20110201
  9. LISINOPRIL AND HYDROCHLOROTHIAZIDE [Suspect]
     Route: 048
     Dates: start: 20110201
  10. LISINOPRIL AND HYDROCHLOROTHIAZIDE [Suspect]
     Route: 048
     Dates: start: 20110201
  11. LISINOPRIL AND HYDROCHLOROTHIAZIDE [Suspect]
     Route: 048
     Dates: start: 20050101, end: 20110201
  12. LISINOPRIL AND HYDROCHLOROTHIAZIDE [Suspect]
     Route: 048
     Dates: start: 20050101, end: 20110201

REACTIONS (16)
  - PARAESTHESIA [None]
  - HEART RATE INCREASED [None]
  - BURNING SENSATION [None]
  - MUSCULOSKELETAL PAIN [None]
  - MYALGIA [None]
  - DRUG INEFFECTIVE [None]
  - COUGH [None]
  - CHEST PAIN [None]
  - FATIGUE [None]
  - DIZZINESS [None]
  - BACK PAIN [None]
  - BREAST SWELLING [None]
  - BLOOD PRESSURE SYSTOLIC INCREASED [None]
  - HYPOAESTHESIA [None]
  - MUSCULAR WEAKNESS [None]
  - NAUSEA [None]
